FAERS Safety Report 16549515 (Version 2)
Quarter: 2019Q3

REPORT INFORMATION
  Report Type: Spontaneous
  Country: ES (occurrence: ES)
  Receive Date: 20190710
  Receipt Date: 20190719
  Transmission Date: 20191004
  Serious: Yes (Hospitalization, Other)
  Sender: FDA-Public Use
  Company Number: ES-AMGEN-ESPSP2019107600

PATIENT
  Age: 74 Year
  Sex: Female

DRUGS (6)
  1. CANAKINUMAB. [Concomitant]
     Active Substance: CANAKINUMAB
     Dosage: 150 MILLIGRAM, Q2MO
     Route: 058
     Dates: start: 201709
  2. COLCHICINE. [Concomitant]
     Active Substance: COLCHICINE
     Indication: CHRONIC KIDNEY DISEASE
  3. DARBEPOETIN ALFA [Suspect]
     Active Substance: DARBEPOETIN ALFA
     Indication: NEPHROGENIC ANAEMIA
     Dosage: 150 MILLIGRAM, EVERY 8 WEEKS
     Route: 058
     Dates: start: 201709
  4. ETANERCEPT [Suspect]
     Active Substance: ETANERCEPT
     Indication: FAMILIAL MEDITERRANEAN FEVER
     Dosage: 50 MILLIGRAM, QWK
     Route: 058
     Dates: start: 201509
  5. COLCHICINE. [Concomitant]
     Active Substance: COLCHICINE
     Indication: FAMILIAL MEDITERRANEAN FEVER
     Dosage: 0.5 MILLIGRAM, QD
  6. COLCHICINE. [Concomitant]
     Active Substance: COLCHICINE
     Indication: HYPERTENSIVE HEART DISEASE

REACTIONS (4)
  - C-reactive protein increased [Not Recovered/Not Resolved]
  - Cardiac failure [Unknown]
  - Neutrophilia [Not Recovered/Not Resolved]
  - Drug ineffective [Unknown]

NARRATIVE: CASE EVENT DATE: 2017
